FAERS Safety Report 25918396 (Version 1)
Quarter: 2025Q4

REPORT INFORMATION
  Report Type: Spontaneous
  Country: EU (occurrence: EU)
  Receive Date: 20251014
  Receipt Date: 20251014
  Transmission Date: 20260118
  Serious: Yes (Other)
  Sender: BAYER HEALTHCARE PHARMACEUTICALS INC.
  Company Number: None

PATIENT
  Age: 66 Year
  Sex: Female

DRUGS (1)
  1. ULTRAVIST [Suspect]
     Active Substance: IOPROMIDE
     Indication: Computerised tomogram
     Dosage: 75 ML, ONCE
     Route: 042
     Dates: start: 20250919, end: 20250919

REACTIONS (8)
  - Eye irritation [Recovered/Resolved]
  - Malaise [Recovered/Resolved]
  - Ear pruritus [Recovered/Resolved]
  - Rash [Recovered/Resolved]
  - Perioral dermatitis [Recovered/Resolved]
  - Rash [Recovered/Resolved]
  - Fatigue [Recovered/Resolved]
  - Rash [Recovered/Resolved]

NARRATIVE: CASE EVENT DATE: 20250919
